FAERS Safety Report 14387754 (Version 2)
Quarter: 2018Q3

REPORT INFORMATION
  Report Type: Spontaneous
  Country: US (occurrence: US)
  Receive Date: 20180115
  Receipt Date: 20180709
  Transmission Date: 20181010
  Serious: Yes (Other)
  Sender: FDA-Public Use
  Company Number: US-SA-2017SA189263

PATIENT
  Age: 60 Year
  Sex: Female
  Weight: 62.14 kg

DRUGS (14)
  1. NEOSAR [Concomitant]
     Active Substance: CYCLOPHOSPHAMIDE
  2. DOXYCYCLINE HYDROCHLORIDE [Concomitant]
     Active Substance: DOXYCYCLINE HYDROCHLORIDE
  3. QUINAPRIL. [Concomitant]
     Active Substance: QUINAPRIL
     Dosage: 10 MG,QD
     Route: 048
  4. TAXOTERE [Suspect]
     Active Substance: DOCETAXEL
     Dosage: 60 MG,Q3W
     Route: 051
     Dates: start: 20140220, end: 20140220
  5. ACETYLSALICYLIC ACID [Concomitant]
     Active Substance: ASPIRIN
     Dosage: 81 MG,QD
     Route: 048
  6. IBUPROFEN. [Concomitant]
     Active Substance: IBUPROFEN
     Dosage: 800 MG,Q8H
     Route: 048
  7. SILYBUM MARIANUM [Concomitant]
     Active Substance: DIETARY SUPPLEMENT\HERBALS\MILK THISTLE
     Dosage: 2 DF,QD
     Route: 065
  8. BENZYL BENZOATE [Concomitant]
     Active Substance: BENZYL BENZOATE
     Dosage: UNK UNK,BID
     Route: 061
  9. LIPITOR [Concomitant]
     Active Substance: ATORVASTATIN CALCIUM
     Dosage: 40 MG,QD
     Route: 048
  10. Q?PAP [Concomitant]
     Active Substance: ACETAMINOPHEN
     Dosage: 1 DF,QD
     Route: 065
  11. CALCIUM [Concomitant]
     Active Substance: CALCIUM
  12. TAXOTERE [Suspect]
     Active Substance: DOCETAXEL
     Indication: BREAST CANCER
     Dosage: 60 MG,Q3W
     Route: 051
     Dates: start: 20131107, end: 20131107
  13. VACCINIUM MACROCARPON [Concomitant]
     Active Substance: CRANBERRY
     Dosage: 500 MG,QD
     Route: 065
  14. ERGOCALCIFEROL. [Concomitant]
     Active Substance: ERGOCALCIFEROL
     Dosage: 5000 DF,QM
     Route: 048

REACTIONS (2)
  - Psychological trauma [Unknown]
  - Alopecia [Recovering/Resolving]

NARRATIVE: CASE EVENT DATE: 201408
